FAERS Safety Report 21263750 (Version 1)
Quarter: 2022Q3

REPORT INFORMATION
  Report Type: Other
  Country: US (occurrence: None)
  Receive Date: 20220829
  Receipt Date: 20220829
  Transmission Date: 20221026
  Serious: Yes (Other)
  Sender: FDA-Public Use
  Company Number: US-ROCHE-3165293

PATIENT
  Sex: Female
  Weight: 124.85 kg

DRUGS (12)
  1. OCREVUS [Suspect]
     Active Substance: OCRELIZUMAB
     Indication: Relapsing-remitting multiple sclerosis
     Route: 042
  2. OMEPRAZOLE [Concomitant]
     Active Substance: OMEPRAZOLE
  3. ROSUVASTATIN [Concomitant]
     Active Substance: ROSUVASTATIN
  4. CLOPIDOGREL [Concomitant]
     Active Substance: CLOPIDOGREL BISULFATE
  5. FLUTICASONE PROPIONATE [Concomitant]
     Active Substance: FLUTICASONE PROPIONATE
  6. HYDROCHLOROTHIAZIDE [Concomitant]
     Active Substance: HYDROCHLOROTHIAZIDE
  7. HYDROCODONE [Concomitant]
     Active Substance: HYDROCODONE
  8. LOSARTAN [Concomitant]
     Active Substance: LOSARTAN
  9. SYMPROIC [Concomitant]
     Active Substance: NALDEMEDINE
  10. TIZANIDINE [Concomitant]
     Active Substance: TIZANIDINE
  11. XTAMPZA ER [Concomitant]
     Active Substance: OXYCODONE
  12. CARVEDILOL [Concomitant]
     Active Substance: CARVEDILOL

REACTIONS (6)
  - Polycythaemia vera [Unknown]
  - Myalgia [Unknown]
  - Back pain [Unknown]
  - Asthenia [Unknown]
  - Gait disturbance [Unknown]
  - Fatigue [Unknown]
